FAERS Safety Report 9815625 (Version 1)
Quarter: 2014Q1

REPORT INFORMATION
  Report Type: Spontaneous
  Country: GB (occurrence: None)
  Receive Date: 20140110
  Receipt Date: 20140110
  Transmission Date: 20141002
  Serious: Yes (Hospitalization)
  Sender: FDA-Public Use
  Company Number: 2013TP000542

PATIENT
  Age: 59 Year
  Sex: Male

DRUGS (5)
  1. LIDOCAINE [Suspect]
     Indication: LOCAL ANAESTHESIA
     Dosage: ; TOP
     Route: 061
     Dates: start: 20130814, end: 20130814
  2. HYALASE [Suspect]
     Indication: LOCAL ANAESTHESIA
     Dosage: 150 IU;  ;TOP
     Route: 061
     Dates: start: 20130814, end: 20130814
  3. AMLODIPINE [Concomitant]
  4. RAMPRIL [Concomitant]
  5. LEVOBUPIVACAINE [Suspect]
     Indication: LOCAL ANAESTHESIA
     Dosage: 0.75 PCT;  ;TOP
     Route: 061
     Dates: start: 20130814, end: 20130814

REACTIONS (1)
  - Eyelid oedema [None]
